FAERS Safety Report 9750514 (Version 2)
Quarter: 2013Q4

REPORT INFORMATION
  Report Type: Spontaneous
  Country: FR (occurrence: FR)
  Receive Date: 20131212
  Receipt Date: 20131212
  Transmission Date: 20140711
  Serious: Yes (Hospitalization)
  Sender: FDA-Public Use
  Company Number: FR-PFIZER INC-FR-WYE-G02558308

PATIENT
  Age: 43 Year
  Sex: Female

DRUGS (5)
  1. PREMARIN [Suspect]
     Dosage: UNK
     Dates: start: 1989, end: 1994
  2. ANDROCUR [Suspect]
     Indication: POLYCYSTIC OVARIES
     Dosage: 25 MG, 1X/DAY
     Route: 048
     Dates: start: 1989, end: 2006
  3. SOPROL [Concomitant]
     Dosage: 10 MG, UNK
     Route: 048
  4. APROVEL [Concomitant]
     Dosage: 300 MG, UNK
     Route: 048
  5. HYPERIUM [Concomitant]
     Dosage: 1 MG, UNK
     Route: 048

REACTIONS (2)
  - Meningioma [Not Recovered/Not Resolved]
  - Visual field defect [Not Recovered/Not Resolved]
